FAERS Safety Report 24685597 (Version 1)
Quarter: 2024Q4

REPORT INFORMATION
  Report Type: Spontaneous
  Country: JP (occurrence: JP)
  Receive Date: 20241202
  Receipt Date: 20241202
  Transmission Date: 20250114
  Serious: Yes (Hospitalization)
  Sender: JOHNSON AND JOHNSON
  Company Number: JP-JNJFOC-20201123094

PATIENT
  Age: 83 Year
  Sex: Female

DRUGS (3)
  1. IBRUTINIB [Suspect]
     Active Substance: IBRUTINIB
     Indication: Mantle cell lymphoma
     Route: 048
     Dates: start: 20201012, end: 20201021
  2. IBRUTINIB [Suspect]
     Active Substance: IBRUTINIB
     Route: 048
     Dates: start: 20201022, end: 20201106
  3. IBRUTINIB [Suspect]
     Active Substance: IBRUTINIB
     Route: 048
     Dates: start: 20210125

REACTIONS (11)
  - Fall [Recovering/Resolving]
  - Contusion [Recovering/Resolving]
  - Traumatic intracranial haemorrhage [Recovering/Resolving]
  - Loss of consciousness [Unknown]
  - Malaise [Recovered/Resolved]
  - Rash [Unknown]
  - Arthralgia [Unknown]
  - Arthralgia [Unknown]
  - Stomatitis [Recovered/Resolved]
  - Inappropriate schedule of product administration [Unknown]
  - Off label use [Unknown]

NARRATIVE: CASE EVENT DATE: 20200101
